FAERS Safety Report 5772083-8 (Version None)
Quarter: 2008Q2

REPORT INFORMATION
  Report Type: 
  Country: None (occurrence: None)
  Receive Date: 20080612
  Receipt Date: 20080612
  Transmission Date: 20081010
  Serious: No
  Sender: FDA-Public Use
  Company Number: None

PATIENT
  Sex: Female
  Weight: 60.78 kg

DRUGS (2)
  1. CYCLOPHOSPHAMIDE [Suspect]
     Dosage: 1044 MG
  2. DOXORUBICIN HYDROCHLORIDE [Suspect]
     Dosage: 104 MG

REACTIONS (3)
  - DEEP VEIN THROMBOSIS [None]
  - LIVER FUNCTION TEST ABNORMAL [None]
  - THROMBOPHLEBITIS SUPERFICIAL [None]
